FAERS Safety Report 5648912-5 (Version None)
Quarter: 2008Q1

REPORT INFORMATION
  Report Type: 
  Country: None (occurrence: None)
  Receive Date: 20080304
  Receipt Date: 20080204
  Transmission Date: 20080703
  Serious: No
  Sender: FDA-Public Use
  Company Number: US-BAYER-200813068NA

PATIENT
  Age: 31 Year
  Sex: Male
  Weight: 84 kg

DRUGS (2)
  1. MAGNEVIST [Suspect]
     Indication: NUCLEAR MAGNETIC RESONANCE IMAGING BRAIN
     Dosage: TOTAL DAILY DOSE: 17 ML  UNIT DOSE: 17 ML
     Route: 042
     Dates: start: 20080131, end: 20080131
  2. THYROID TAB [Concomitant]

REACTIONS (3)
  - HYPOAESTHESIA ORAL [None]
  - LIP SWELLING [None]
  - URTICARIA [None]
